FAERS Safety Report 21642849 (Version 2)
Quarter: 2022Q4

REPORT INFORMATION
  Report Type: Report from Study
  Country: FR (occurrence: None)
  Receive Date: 20221125
  Receipt Date: 20221128
  Transmission Date: 20230113
  Serious: Yes (Death, Hospitalization)
  Sender: FDA-Public Use
  Company Number: FR-ROCHE-3219284

PATIENT
  Age: 77 Year
  Sex: Male
  Weight: 74 kg

DRUGS (9)
  1. GLOFITAMAB [Suspect]
     Active Substance: GLOFITAMAB
     Indication: Diffuse large B-cell lymphoma
     Dosage: ON 07/NOV/2022, HE RECEIVED MOST RECENT DOSE OF GLOFITAMAB
     Route: 042
     Dates: start: 20220829
  2. OBINUTUZUMAB [Suspect]
     Active Substance: OBINUTUZUMAB
     Indication: Diffuse large B-cell lymphoma
     Dosage: ON 26/AUG/2022, HE RECEIVED MOST RECENT DOSE OF OBINUTUZUMAB
     Route: 042
     Dates: start: 20220826
  3. ATOVAQUONE [Concomitant]
     Active Substance: ATOVAQUONE
  4. VALACYCLOVIR HYDROCHLORIDE [Concomitant]
     Active Substance: VALACYCLOVIR HYDROCHLORIDE
  5. OMEPRAZOLE [Concomitant]
     Active Substance: OMEPRAZOLE
  6. ALPRAZOLAM [Concomitant]
     Active Substance: ALPRAZOLAM
  7. SIMVASTATIN [Concomitant]
     Active Substance: SIMVASTATIN
  8. EVUSHELD [Concomitant]
     Active Substance: CILGAVIMAB\TIXAGEVIMAB
     Dates: start: 20221104
  9. PAXLOVID [Concomitant]
     Active Substance: NIRMATRELVIR\RITONAVIR
     Dates: start: 20221025, end: 20221029

REACTIONS (2)
  - COVID-19 [Fatal]
  - Pyrexia [Not Recovered/Not Resolved]

NARRATIVE: CASE EVENT DATE: 20221108
